FAERS Safety Report 9104050 (Version 1)
Quarter: 2013Q1

REPORT INFORMATION
  Report Type: Spontaneous
  Country: US (occurrence: US)
  Receive Date: 20130219
  Receipt Date: 20130219
  Transmission Date: 20140127
  Serious: Yes (Hospitalization)
  Sender: FDA-Public Use
  Company Number: US-AMGEN-USASP2013010812

PATIENT
  Age: 54 Year
  Sex: Female

DRUGS (3)
  1. ENBREL [Suspect]
     Indication: PSORIASIS
     Dosage: 50 MG, 2 TIMES/WK
     Dates: start: 20041001
  2. REMICADE [Concomitant]
     Dosage: UNK
  3. POTASSIUM [Concomitant]
     Dosage: UNK

REACTIONS (7)
  - Abdominal pain [Unknown]
  - Liver disorder [Unknown]
  - Diarrhoea [Recovered/Resolved]
  - Pharyngitis [Recovered/Resolved]
  - Headache [Not Recovered/Not Resolved]
  - Arthralgia [Unknown]
  - Psoriasis [Not Recovered/Not Resolved]
